APPROVED DRUG PRODUCT: EXELDERM
Active Ingredient: SULCONAZOLE NITRATE
Strength: 1%
Dosage Form/Route: CREAM;TOPICAL
Application: N018737 | Product #001
Applicant: JOURNEY MEDICAL CORP
Approved: Feb 28, 1989 | RLD: Yes | RS: Yes | Type: RX